FAERS Safety Report 4575905-1 (Version None)
Quarter: 2005Q1

REPORT INFORMATION
  Report Type: 
  Country: None (occurrence: None)
  Receive Date: 20050209
  Receipt Date: 20050112
  Transmission Date: 20050727
  Serious: Yes (Hospitalization, Other)
  Sender: FDA-Public Use
  Company Number: US-AMGEN-US100141

PATIENT
  Sex: Female

DRUGS (9)
  1. EPOGEN [Suspect]
     Indication: DIALYSIS
     Dates: start: 20030101, end: 20050101
  2. BLOOD CELLS, PACKED HUMAN [Concomitant]
  3. PRILOSEC [Concomitant]
  4. LOPRESSOR [Concomitant]
  5. IMDUR [Concomitant]
  6. PLAVIX [Concomitant]
  7. DIGOXIN [Concomitant]
  8. PREDNISONE [Concomitant]
  9. ARAVA [Concomitant]
     Dates: end: 20040801

REACTIONS (6)
  - ANTI-ERYTHROCYTE ANTIBODY POSITIVE [None]
  - APLASIA PURE RED CELL [None]
  - CHEST PAIN [None]
  - COOMBS TEST POSITIVE [None]
  - RENAL OSTEODYSTROPHY [None]
  - THERAPEUTIC RESPONSE DECREASED [None]
